FAERS Safety Report 6076197-7 (Version None)
Quarter: 2009Q1

REPORT INFORMATION
  Report Type: 
  Country: None (occurrence: None)
  Receive Date: 20090212
  Receipt Date: 20090131
  Transmission Date: 20090719
  Serious: Yes (Hospitalization, Other)
  Sender: FDA-Public Use
  Company Number: US-PFIZER INC-2008160789

PATIENT
  Sex: Male
  Weight: 106.59 kg

DRUGS (4)
  1. TIKOSYN [Suspect]
     Indication: ATRIAL FIBRILLATION
     Dosage: 750 UG, 2X/DAY
     Dates: start: 20040101
  2. TIKOSYN [Suspect]
     Indication: ARRHYTHMIA
  3. WARFARIN [Concomitant]
     Dates: end: 20081101
  4. COREG [Concomitant]
     Dosage: UNK

REACTIONS (3)
  - DYSPHAGIA [None]
  - SPINAL FUSION SURGERY [None]
  - WEIGHT DECREASED [None]
